FAERS Safety Report 26066821 (Version 1)
Quarter: 2025Q4

REPORT INFORMATION
  Report Type: Spontaneous
  Country: CN (occurrence: CN)
  Receive Date: 20251119
  Receipt Date: 20251119
  Transmission Date: 20260117
  Serious: Yes (Other)
  Sender: NOVO NORDISK
  Company Number: None

PATIENT
  Age: 54 Year
  Sex: Male
  Weight: 65 kg

DRUGS (3)
  1. NOVORAPID [Suspect]
     Active Substance: INSULIN ASPART
     Indication: Blood glucose increased
     Dosage: 8 IU, TID
     Route: 058
     Dates: start: 20251027, end: 20251030
  2. NOVORAPID [Suspect]
     Active Substance: INSULIN ASPART
     Dosage: 8-8-6 IU, TID
     Route: 058
     Dates: start: 20251031
  3. ATORVASTATIN CALCIUM [Concomitant]
     Active Substance: ATORVASTATIN CALCIUM
     Indication: Hyperlipidaemia
     Dosage: 1 GRAIN,QD
     Route: 048
     Dates: start: 20251028

REACTIONS (2)
  - Amaurosis [Recovering/Resolving]
  - Hypoglycaemia [Recovering/Resolving]

NARRATIVE: CASE EVENT DATE: 20251030
